FAERS Safety Report 5726470-4 (Version None)
Quarter: 2008Q2

REPORT INFORMATION
  Report Type: 
  Country: None (occurrence: None)
  Receive Date: 20080502
  Receipt Date: 20080501
  Transmission Date: 20081010
  Serious: Yes (Other)
  Sender: FDA-Public Use
  Company Number: B0518961A

PATIENT
  Age: 25 Year

DRUGS (1)
  1. ARYTHMOL [Suspect]
     Route: 065
     Dates: start: 20051201, end: 20070601

REACTIONS (1)
  - ABORTION INDUCED [None]
